FAERS Safety Report 9357629 (Version 1)
Quarter: 2013Q2

REPORT INFORMATION
  Report Type: Spontaneous
  Country: CN (occurrence: CN)
  Receive Date: 20130620
  Receipt Date: 20130620
  Transmission Date: 20140414
  Serious: Yes (Other)
  Sender: FDA-Public Use
  Company Number: CN-ASTRAZENECA-2013SE46286

PATIENT
  Sex: Male
  Weight: 8.6 kg

DRUGS (5)
  1. BUDESONIDE [Suspect]
     Indication: BRONCHITIS
     Route: 065
     Dates: start: 20120301, end: 20120310
  2. TERBUTALINE SULFATE [Suspect]
     Indication: BRONCHITIS
     Route: 065
     Dates: start: 20120301, end: 20120310
  3. AMBROXOL HYDROCHLORIDE [Suspect]
     Indication: BRONCHITIS
     Route: 041
     Dates: start: 20120301, end: 20120310
  4. CEFUROXIME SODIUM [Suspect]
     Indication: BRONCHITIS
     Route: 041
     Dates: start: 20120301, end: 20120307
  5. IPRATROPIUM BROMIDE [Suspect]
     Indication: BRONCHITIS
     Route: 065
     Dates: start: 20120301, end: 20120310

REACTIONS (1)
  - Neutropenia [Recovering/Resolving]
